FAERS Safety Report 5805028-2 (Version None)
Quarter: 2008Q3

REPORT INFORMATION
  Report Type: 
  Country: None (occurrence: None)
  Receive Date: 20080709
  Receipt Date: 20080702
  Transmission Date: 20090109
  Serious: Yes (Other)
  Sender: FDA-Public Use
  Company Number: ZA-BOEHRINGER INGELHEIM GMBH, GERMANY-2008-DE-03841GD

PATIENT

DRUGS (7)
  1. NEVIRAPINE [Suspect]
     Indication: PROPHYLAXIS
     Route: 064
  2. NEVIRAPINE [Suspect]
     Indication: HUMAN IMMUNODEFICIENCY VIRUS TRANSMISSION
     Dosage: 2 MG/KG
  3. NEVIRAPINE [Suspect]
     Indication: HIV INFECTION
  4. ZIDOVUDINE [Suspect]
     Indication: HIV INFECTION
  5. LAMIVUDINE [Suspect]
     Indication: HIV INFECTION
  6. NELFINAVIR [Suspect]
     Indication: HIV INFECTION
     Dosage: 150 MG/KG
  7. COTRIMOXAZOLE [Concomitant]
     Indication: PROPHYLAXIS

REACTIONS (4)
  - DRUG INEFFECTIVE [None]
  - DRUG RESISTANCE [None]
  - HUMAN IMMUNODEFICIENCY VIRUS TRANSMISSION [None]
  - VIRAL MUTATION IDENTIFIED [None]
